FAERS Safety Report 21700187 (Version 1)
Quarter: 2022Q4

REPORT INFORMATION
  Report Type: Spontaneous
  Country: US (occurrence: None)
  Receive Date: 20221208
  Receipt Date: 20221208
  Transmission Date: 20230112
  Serious: No
  Sender: FDA-Public Use
  Company Number: 2022A392202

PATIENT

DRUGS (16)
  1. LYNPARZA [Suspect]
     Active Substance: OLAPARIB
     Route: 048
  2. ELIQUIS [Concomitant]
     Active Substance: APIXABAN
  3. LANTUS [Concomitant]
     Active Substance: INSULIN GLARGINE
  4. MODAFINIL [Concomitant]
     Active Substance: MODAFINIL
  5. PROPAFENONE HCL [Concomitant]
     Active Substance: PROPAFENONE HYDROCHLORIDE
  6. VITAMIN D3 [Concomitant]
     Active Substance: CHOLECALCIFEROL
  7. PRAVASTATIN SODIUM [Concomitant]
     Active Substance: PRAVASTATIN SODIUM
  8. GLIMEPIRIDE [Concomitant]
     Active Substance: GLIMEPIRIDE
  9. METFORMIN HYDROCHLORIDE [Concomitant]
     Active Substance: METFORMIN HYDROCHLORIDE
  10. DOXAZOSIN MESYLATE [Concomitant]
     Active Substance: DOXAZOSIN MESYLATE
  11. ALTACE [Concomitant]
     Active Substance: RAMIPRIL
  12. FAMOTIDINE [Concomitant]
     Active Substance: FAMOTIDINE
  13. CYANOCOBALAMIN POWDER [Concomitant]
  14. ONDANSETRON HCL [Concomitant]
     Active Substance: ONDANSETRON HYDROCHLORIDE
  15. ALPRAZOLAM [Concomitant]
     Active Substance: ALPRAZOLAM
  16. OXYBUTYNIN CHLORIDE [Concomitant]
     Active Substance: OXYBUTYNIN CHLORIDE

REACTIONS (3)
  - Swelling [Unknown]
  - Nausea [Unknown]
  - Drug ineffective [Unknown]
